FAERS Safety Report 6553051-5 (Version None)
Quarter: 2010Q1

REPORT INFORMATION
  Report Type: 
  Country: None (occurrence: None)
  Receive Date: 20100122
  Receipt Date: 20100111
  Transmission Date: 20100710
  Serious: Yes (Death)
  Sender: FDA-Public Use
  Company Number: 004851

PATIENT
  Age: 39 Year
  Sex: Female

DRUGS (6)
  1. LEVETIRACETAM [Suspect]
     Dosage: (ORAL)
     Route: 048
  2. QUETIAPINE [Suspect]
     Dosage: (ORAL)
     Route: 048
  3. BUPROPION HCL [Suspect]
  4. PHENOBARBITAL TAB [Suspect]
     Dosage: (ORAL)
  5. PHENOBARBITAL TAB [Suspect]
     Dosage: (ORAL)
     Route: 048
  6. TRAMADOL [Suspect]
     Dosage: (ORAL)
     Route: 048

REACTIONS (2)
  - COMPLETED SUICIDE [None]
  - POISONING [None]
